FAERS Safety Report 12965409 (Version 3)
Quarter: 2017Q2

REPORT INFORMATION
  Report Type: Spontaneous
  Country: CN (occurrence: CN)
  Receive Date: 20161122
  Receipt Date: 20170407
  Transmission Date: 20170830
  Serious: Yes (Other)
  Sender: FDA-Public Use
  Company Number: CN-BAYER-2016-219195

PATIENT
  Weight: 15 kg

DRUGS (1)
  1. KOGENATE FS [Suspect]
     Active Substance: ANTIHEMOPHILIC FACTOR, HUMAN RECOMBINANT
     Indication: PROPHYLAXIS
     Dosage: 500 IU (2 VIALS OF 250 IU), OW

REACTIONS (6)
  - Unevaluable event [None]
  - Product quality issue [None]
  - Haemorrhage [None]
  - Out of specification test results [None]
  - Drug ineffective [None]
  - Arthralgia [None]
